FAERS Safety Report 10155168 (Version 1)
Quarter: 2014Q2

REPORT INFORMATION
  Report Type: Spontaneous
  Country: BR (occurrence: BR)
  Receive Date: 20140506
  Receipt Date: 20140506
  Transmission Date: 20141212
  Serious: Yes (Hospitalization, Other)
  Sender: FDA-Public Use
  Company Number: BR-PFIZER INC-2014122557

PATIENT
  Sex: Male

DRUGS (6)
  1. ATENOLOL [Suspect]
     Dosage: 50 MG, UNK
     Route: 065
  2. ROSUVASTATIN [Suspect]
     Dosage: 20 MG, UNK
     Route: 048
  3. SOMALGIN [Concomitant]
     Route: 065
  4. PANTOPRAZOLE [Concomitant]
     Route: 065
  5. DOMPERIDONE [Concomitant]
     Route: 065
  6. XALACOM [Concomitant]
     Route: 065

REACTIONS (4)
  - Arteriosclerosis [Recovered/Resolved]
  - Blood pressure increased [Unknown]
  - Chest pain [Unknown]
  - Abdominal pain upper [Unknown]
